FAERS Safety Report 23246334 (Version 3)
Quarter: 2024Q1

REPORT INFORMATION
  Report Type: Spontaneous
  Country: US (occurrence: US)
  Receive Date: 20231130
  Receipt Date: 20240206
  Transmission Date: 20240410
  Serious: No
  Sender: FDA-Public Use
  Company Number: US-SA-SAC20231122001050

PATIENT
  Age: 57 Year
  Sex: Female

DRUGS (1)
  1. DUPIXENT [Suspect]
     Active Substance: DUPILUMAB
     Indication: Dermatitis atopic
     Dosage: 300 MG, QOW
     Route: 058
     Dates: start: 202109

REACTIONS (16)
  - Stress [Unknown]
  - Skin infection [Unknown]
  - Dermatitis psoriasiform [Unknown]
  - Prurigo [Unknown]
  - Neurodermatitis [Unknown]
  - Neoplasm [Unknown]
  - Dermatitis atopic [Unknown]
  - Dry skin [Unknown]
  - Scab [Unknown]
  - Lichenification [Unknown]
  - Skin erosion [Unknown]
  - Rash erythematous [Unknown]
  - Oral herpes [Unknown]
  - Drug ineffective [Unknown]
  - Inappropriate schedule of product administration [Unknown]
  - Therapeutic product effect decreased [Unknown]
